FAERS Safety Report 19695411 (Version 1)
Quarter: 2021Q3

REPORT INFORMATION
  Report Type: Spontaneous
  Country: US (occurrence: US)
  Receive Date: 20210813
  Receipt Date: 20210813
  Transmission Date: 20211014
  Serious: Yes (Hospitalization, Other)
  Sender: FDA-Public Use
  Company Number: US-SUN PHARMACEUTICAL INDUSTRIES LTD-2021R1-307451

PATIENT
  Age: 49 Year
  Sex: Female

DRUGS (8)
  1. BACLOFEN. [Suspect]
     Active Substance: BACLOFEN
     Indication: PAIN
     Dosage: 5 MILLIGRAM, DAILY
     Route: 065
  2. DULOXETINE. [Suspect]
     Active Substance: DULOXETINE
     Indication: PAIN
     Dosage: 60 MILLIGRAM, BID
     Route: 065
  3. PREGABALIN. [Suspect]
     Active Substance: PREGABALIN
     Indication: PAIN
     Dosage: 225 MILLIGRAM, DAILY
     Route: 065
  4. FENTANYL. [Suspect]
     Active Substance: FENTANYL
     Indication: PAIN
     Dosage: 100 MICROGRAM/H EVERY 48 HOURS
     Route: 065
  5. AMITRIPTYLINE [Suspect]
     Active Substance: AMITRIPTYLINE
     Indication: PAIN
     Dosage: 25 MILLIGRAM AT BEDTIME
     Route: 065
  6. FENTANYL. [Suspect]
     Active Substance: FENTANYL
     Dosage: 200 MICROGRAM/H EVERY 72 HOURS
     Route: 065
  7. ALPRAZOLAM. [Suspect]
     Active Substance: ALPRAZOLAM
     Indication: PAIN
     Dosage: 1 MILLIGRAM, BID
     Route: 065
  8. OXYCODONE [Suspect]
     Active Substance: OXYCODONE
     Indication: PAIN
     Dosage: 30 MILLIGRAM, EVERY 4 HRS
     Route: 065

REACTIONS (3)
  - Dependence [Unknown]
  - Hyperaesthesia [Unknown]
  - Drug ineffective [Unknown]
